FAERS Safety Report 8836581 (Version 1)
Quarter: 2012Q4

REPORT INFORMATION
  Report Type: Spontaneous
  Country: US (occurrence: None)
  Receive Date: 20121009
  Receipt Date: 20121009
  Transmission Date: 20130627
  Serious: Yes (Hospitalization)
  Sender: FDA-Public Use
  Company Number: DSA_59890_2012

PATIENT
  Age: 60 Year
  Sex: Male

DRUGS (3)
  1. NIFEDIPINE [Suspect]
     Indication: SUICIDE ATTEMPT
  2. NIFEDIPINE [Suspect]
     Indication: SUICIDE ATTEMPT
  3. NIFEDIPINE [Suspect]
     Indication: SUICIDE ATTEMPT

REACTIONS (6)
  - Heart rate decreased [None]
  - Blood pressure systolic decreased [None]
  - Renal failure acute [None]
  - Small intestinal obstruction [None]
  - Refusal of treatment by patient [None]
  - Incorrect dose administered [None]
